FAERS Safety Report 4402703-1 (Version None)
Quarter: 2004Q3

REPORT INFORMATION
  Report Type: 
  Country: None (occurrence: None)
  Receive Date: 20040721
  Receipt Date: 20030319
  Transmission Date: 20050211
  Serious: No
  Sender: FDA-Public Use
  Company Number: US-BRISTOL-MYERS SQUIBB COMPANY-12216362

PATIENT
  Age: 73 Year
  Sex: Female

DRUGS (2)
  1. ULTRACEF [Suspect]
  2. ULTRACET [Concomitant]

REACTIONS (1)
  - MEDICATION ERROR [None]
